FAERS Safety Report 6940422-8 (Version None)
Quarter: 2010Q3

REPORT INFORMATION
  Report Type: 
  Country: None (occurrence: None)
  Receive Date: 20100825
  Receipt Date: 20100807
  Transmission Date: 20110219
  Serious: Yes (Other)
  Sender: FDA-Public Use
  Company Number: PHHY2010HU52429

PATIENT
  Sex: Male
  Weight: 120 kg

DRUGS (3)
  1. RASILEZ [Suspect]
     Indication: HYPERTENSION
     Dosage: 150 MG DAILY
     Route: 048
     Dates: start: 20100628, end: 20100716
  2. PORTIRON HCT [Concomitant]
  3. ATORVA [Concomitant]
     Dosage: 1X120 MG

REACTIONS (1)
  - MUSCLE STRAIN [None]
